FAERS Safety Report 13179471 (Version 3)
Quarter: 2017Q2

REPORT INFORMATION
  Report Type: Spontaneous
  Country: US (occurrence: US)
  Receive Date: 20170202
  Receipt Date: 20170511
  Transmission Date: 20170830
  Serious: No
  Sender: FDA-Public Use
  Company Number: US-PFIZER INC-2017042941

PATIENT

DRUGS (1)
  1. HEPARIN SODIUM. [Suspect]
     Active Substance: HEPARIN SODIUM
     Dosage: UNKNOWN DOSE (25000 UNITS/ 25 ML)

REACTIONS (2)
  - Product quality issue [Unknown]
  - Activated partial thromboplastin time prolonged [Unknown]
